FAERS Safety Report 9776452 (Version 1)
Quarter: 2013Q4

REPORT INFORMATION
  Report Type: Spontaneous
  Country: US (occurrence: US)
  Receive Date: 20131220
  Receipt Date: 20131220
  Transmission Date: 20140711
  Serious: No
  Sender: FDA-Public Use
  Company Number: US-BIOGENIDEC-2013BI121090

PATIENT
  Sex: Female

DRUGS (13)
  1. TECFIDERA [Suspect]
     Indication: MULTIPLE SCLEROSIS
     Route: 048
     Dates: start: 201310
  2. TYLENOL [Concomitant]
  3. VITAMIN B COMPLEX-VIT C [Concomitant]
  4. COQ10 SG [Concomitant]
  5. ALEVE [Concomitant]
  6. MILK THISTLE [Concomitant]
  7. MAGNESIUM [Concomitant]
  8. GLYCINE [Concomitant]
  9. CVS FLAXSEED OIL [Concomitant]
  10. CVS VITAMIN B12 [Concomitant]
  11. CVS VITAMIN C [Concomitant]
  12. CVS VITAMIN D3 [Concomitant]
  13. GNP MELATONIN [Concomitant]

REACTIONS (2)
  - Urticaria [Unknown]
  - Nausea [Unknown]
